FAERS Safety Report 8780465 (Version 1)
Quarter: 2012Q4

REPORT INFORMATION
  Report Type: Spontaneous
  Country: US (occurrence: None)
  Receive Date: 20120906
  Receipt Date: 20120906
  Transmission Date: 20130627
  Serious: Yes (Other)
  Sender: FDA-Public Use
  Company Number: None

PATIENT
  Age: 58 Year
  Sex: Female
  Weight: 54.43 kg

DRUGS (1)
  1. FRAGMIN [Suspect]
     Indication: DVT
     Dosage: 7,500 IU per .3 mL 1 x daily sq
     Route: 058
     Dates: start: 20120206, end: 20120514

REACTIONS (2)
  - Alopecia [None]
  - Alopecia effluvium [None]
